FAERS Safety Report 4831318-6 (Version None)
Quarter: 2005Q4

REPORT INFORMATION
  Report Type: 
  Country: None (occurrence: None)
  Receive Date: 20051118
  Receipt Date: 20051107
  Transmission Date: 20060501
  Serious: Yes (Other)
  Sender: FDA-Public Use
  Company Number: NZ-NOVOPROD-248382

PATIENT
  Age: 60 Year

DRUGS (3)
  1. NOVORAPID [Suspect]
     Indication: ILL-DEFINED DISORDER
  2. PROTAPHANE [Concomitant]
  3. PENMIX [Concomitant]

REACTIONS (1)
  - ABDOMINAL PAIN [None]
